FAERS Safety Report 9352049 (Version 2)
Quarter: 2013Q3

REPORT INFORMATION
  Report Type: Spontaneous
  Country: JP (occurrence: JP)
  Receive Date: 20130617
  Receipt Date: 20130909
  Transmission Date: 20140515
  Serious: Yes (Hospitalization)
  Sender: FDA-Public Use
  Company Number: PHHY2013JP061573

PATIENT
  Age: 83 Year
  Sex: Female

DRUGS (9)
  1. RIVASTIGMIN [Suspect]
     Indication: DEMENTIA ALZHEIMER^S TYPE
     Dosage: UNK UKN, UNK
     Route: 062
     Dates: start: 201303, end: 2013
  2. RIVASTIGMIN [Suspect]
     Dosage: 18 MG, ONCE A DAY
     Route: 062
     Dates: start: 2013
  3. YOKUKAN-SAN [Suspect]
     Dosage: UNK UKN, UNK
     Route: 048
     Dates: start: 201209, end: 2013
  4. NU-LOTAN [Concomitant]
  5. GRAMALIL [Concomitant]
  6. ROHYPNOL [Concomitant]
  7. ROZEREM [Concomitant]
  8. PAXIL [Concomitant]
  9. CERCINE [Concomitant]

REACTIONS (6)
  - Aphagia [Recovered/Resolved]
  - Hypokalaemia [Recovered/Resolved]
  - Depressed level of consciousness [Recovered/Resolved]
  - Pain [Recovered/Resolved]
  - Joint range of motion decreased [Recovered/Resolved]
  - Muscular weakness [Recovered/Resolved]
